FAERS Safety Report 6169288-3 (Version None)
Quarter: 2009Q2

REPORT INFORMATION
  Report Type: 
  Country: None (occurrence: None)
  Receive Date: 20090424
  Receipt Date: 20090420
  Transmission Date: 20091009
  Serious: Yes (Other)
  Sender: FDA-Public Use
  Company Number: 2009SP008481

PATIENT
  Age: 22 Year
  Sex: Male

DRUGS (2)
  1. PEG-INTRON [Suspect]
     Indication: HEPATITIS C
     Dosage: SC
     Route: 058
     Dates: start: 20090216
  2. REBETOL [Suspect]
     Indication: HEPATITIS C
     Dosage: PO
     Route: 048
     Dates: start: 20090216

REACTIONS (10)
  - BRONCHITIS [None]
  - DIZZINESS [None]
  - ECZEMA [None]
  - FLUID INTAKE REDUCED [None]
  - FLUSHING [None]
  - INFLUENZA [None]
  - NAUSEA [None]
  - SKIN EXFOLIATION [None]
  - SOMNOLENCE [None]
  - WHITE BLOOD CELL COUNT DECREASED [None]
